FAERS Safety Report 11909532 (Version 1)
Quarter: 2016Q1

REPORT INFORMATION
  Report Type: Spontaneous
  Country: FR (occurrence: FR)
  Receive Date: 20160112
  Receipt Date: 20160112
  Transmission Date: 20160526
  Serious: Yes (Hospitalization)
  Sender: FDA-Public Use
  Company Number: FR-ASTRAZENECA-2016SE02248

PATIENT
  Age: 19637 Day
  Sex: Female

DRUGS (9)
  1. INEXIUM [Suspect]
     Active Substance: ESOMEPRAZOLE
     Route: 042
     Dates: start: 20150831, end: 20150918
  2. IMIPENEM [Concomitant]
     Active Substance: IMIPENEM
     Dates: start: 20150916, end: 20150918
  3. TRAMADOL. [Concomitant]
     Active Substance: TRAMADOL
  4. DOLIPRANE [Concomitant]
     Active Substance: ACETAMINOPHEN
  5. VANCOMYCIN [Suspect]
     Active Substance: VANCOMYCIN
     Dosage: SANDOZ
     Route: 042
     Dates: start: 20150916, end: 20150918
  6. IMIPENEM [Concomitant]
     Active Substance: IMIPENEM
     Dates: start: 201510
  7. PIPERACILLIN [Concomitant]
     Active Substance: PIPERACILLIN
     Dates: start: 20150903, end: 20150916
  8. AMIKACIN [Concomitant]
     Active Substance: AMIKACIN
  9. CANCIDAS [Suspect]
     Active Substance: CASPOFUNGIN ACETATE
     Route: 065
     Dates: start: 20150916, end: 20150918

REACTIONS (1)
  - Drug reaction with eosinophilia and systemic symptoms [Recovered/Resolved]

NARRATIVE: CASE EVENT DATE: 20150918
